APPROVED DRUG PRODUCT: PROPRANOLOL HYDROCHLORIDE
Active Ingredient: PROPRANOLOL HYDROCHLORIDE
Strength: 20MG/5ML
Dosage Form/Route: SOLUTION;ORAL
Application: A070979 | Product #001
Applicant: HIKMA PHARMACEUTICALS USA INC
Approved: May 15, 1987 | RLD: No | RS: Yes | Type: RX